FAERS Safety Report 7706360-8 (Version None)
Quarter: 2011Q3

REPORT INFORMATION
  Report Type: 
  Country: None (occurrence: None)
  Receive Date: 20110824
  Receipt Date: 20110810
  Transmission Date: 20111222
  Serious: Yes (Hospitalization)
  Sender: FDA-Public Use
  Company Number: IT-JNJFOC-20110806376

PATIENT
  Sex: Female
  Weight: 40.8 kg

DRUGS (2)
  1. REMICADE [Suspect]
     Indication: CROHN'S DISEASE
     Route: 042
     Dates: start: 20110519
  2. REMICADE [Suspect]
     Route: 042
     Dates: start: 20110505

REACTIONS (1)
  - PERINEAL FISTULA [None]
